FAERS Safety Report 7335698 (Version 2)
Quarter: 2014Q3

REPORT INFORMATION
  Report Type: Spontaneous
  Country: US (occurrence: None)
  Receive Date: 20100312
  Receipt Date: 20140926
  Transmission Date: 20150326
  Serious: Yes (Hospitalization, Other)
  Sender: FDA-Public Use
  Company Number: 2010S1001395

PATIENT
  Sex: Female

DRUGS (4)
  1. PHOSPHO-SODA [Suspect]
     Active Substance: SODIUM PHOSPHATE, DIBASIC\SODIUM PHOSPHATE, MONOBASIC
     Indication: COLONOSCOPY
     Dosage: PO
     Route: 048
     Dates: start: 20080724, end: 20080725
  2. ZESTORETIC (HYDROCHLOROTHIAZIDE, LISINOPRIL) [Concomitant]
  3. METOPROLOL [Concomitant]
     Active Substance: METOPROLOL
  4. IBUPROFEN. [Concomitant]
     Active Substance: IBUPROFEN

REACTIONS (10)
  - Tubulointerstitial nephritis [None]
  - Blood parathyroid hormone increased [None]
  - Hypovolaemia [None]
  - Nephrogenic anaemia [None]
  - Phlebitis superficial [None]
  - Renal tubular necrosis [None]
  - Restless legs syndrome [None]
  - Renal failure acute [None]
  - Acute pulmonary oedema [None]
  - Acute phosphate nephropathy [None]

NARRATIVE: CASE EVENT DATE: 20080730
